FAERS Safety Report 9210249 (Version 1)
Quarter: 2013Q2

REPORT INFORMATION
  Report Type: Spontaneous
  Country: US (occurrence: US)
  Receive Date: 20130404
  Receipt Date: 20130404
  Transmission Date: 20140414
  Serious: Yes (Hospitalization)
  Sender: FDA-Public Use
  Company Number: US-JNJFOC-20130316702

PATIENT
  Age: 82 Year
  Sex: Female
  Weight: 49.9 kg

DRUGS (4)
  1. REMICADE [Suspect]
     Indication: RHEUMATOID ARTHRITIS
     Route: 042
  2. REMICADE [Suspect]
     Indication: RHEUMATOID ARTHRITIS
     Route: 042
     Dates: start: 2012
  3. METHOTREXATE [Concomitant]
     Indication: ARTHRITIS
     Route: 048
  4. NEURONTIN [Concomitant]
     Indication: PAIN
     Route: 065

REACTIONS (3)
  - Herpes simplex meningoencephalitis [Not Recovered/Not Resolved]
  - Breakthrough pain [Recovered/Resolved]
  - Abdominal pain upper [Unknown]
